FAERS Safety Report 6148227-5 (Version None)
Quarter: 2009Q2

REPORT INFORMATION
  Report Type: 
  Country: None (occurrence: None)
  Receive Date: 20090408
  Receipt Date: 20090330
  Transmission Date: 20091009
  Serious: Yes (Other)
  Sender: FDA-Public Use
  Company Number: AU-ELI_LILLY_AND_COMPANY-AU200903004985

PATIENT
  Sex: Female

DRUGS (4)
  1. HUMALOG [Suspect]
     Indication: TYPE 1 DIABETES MELLITUS
     Dosage: UNK, UNK
     Dates: start: 20060101
  2. HUMALOG [Suspect]
     Dosage: UNK, UNKNOWN
     Route: 058
  3. HUMALOG [Suspect]
     Dosage: 16 IU, DAILY (1/D)
     Route: 058
  4. KLIOVANCE [Concomitant]
     Indication: MENOPAUSE
     Dosage: UNK, DAILY (1/D)
     Dates: start: 20050101

REACTIONS (2)
  - DIABETES MELLITUS INADEQUATE CONTROL [None]
  - DRUG INEFFECTIVE [None]
